FAERS Safety Report 17236967 (Version 1)
Quarter: 2020Q1

REPORT INFORMATION
  Report Type: Spontaneous
  Country: FR (occurrence: FR)
  Receive Date: 20200106
  Receipt Date: 20200106
  Transmission Date: 20200409
  Serious: Yes (Hospitalization, Other)
  Sender: FDA-Public Use
  Company Number: FR-PFIZER INC-2020003083

PATIENT
  Age: 73 Year
  Sex: Male

DRUGS (7)
  1. PRADAXA [Suspect]
     Active Substance: DABIGATRAN ETEXILATE MESYLATE
     Indication: ATRIAL FIBRILLATION
     Dosage: 220 MG, QD
     Route: 048
     Dates: start: 20191030, end: 20191209
  2. TRULICITY [Concomitant]
     Active Substance: DULAGLUTIDE
     Indication: KETOSIS-PRONE DIABETES MELLITUS
     Dosage: 1 DF, QW  1INJ / WEEK
     Route: 058
  3. DIAMICRON [Concomitant]
     Active Substance: GLICLAZIDE
     Indication: KETOSIS-PRONE DIABETES MELLITUS
     Dosage: 120 MG QD
     Route: 048
  4. ESOMEPRAZOLE. [Concomitant]
     Active Substance: ESOMEPRAZOLE MAGNESIUM
     Indication: GASTRIC ULCER
     Dosage: 20 MG QD
     Route: 048
  5. CORDARONE [Suspect]
     Active Substance: AMIODARONE HYDROCHLORIDE
     Indication: ATRIAL FIBRILLATION
     Dosage: 200 MG QD
     Route: 048
     Dates: start: 20191030, end: 20191202
  6. EZETROL [Concomitant]
     Active Substance: EZETIMIBE
     Indication: HYPERCHOLESTEROLAEMIA
     Dosage: 10 MG QD
     Route: 048
  7. BISOPROLOL FUMARATE. [Concomitant]
     Active Substance: BISOPROLOL FUMARATE
     Indication: HYPERTENSION
     Dosage: 5 MG QD
     Route: 048

REACTIONS (3)
  - Hepatitis cholestatic [Recovering/Resolving]
  - Rectal haemorrhage [Not Recovered/Not Resolved]
  - Pruritus [Recovering/Resolving]

NARRATIVE: CASE EVENT DATE: 20191202
